FAERS Safety Report 5218813-5 (Version None)
Quarter: 2007Q1

REPORT INFORMATION
  Report Type: 
  Country: None (occurrence: None)
  Receive Date: 20070122
  Receipt Date: 20070122
  Transmission Date: 20070707
  Serious: Yes (Hospitalization)
  Sender: FDA-Public Use
  Company Number: None

PATIENT
  Age: 49 Year
  Sex: Male
  Weight: 105 kg

DRUGS (3)
  1. SALSALATE 750MG [Suspect]
     Indication: BACK PAIN
     Dosage: 750MG  Q8 H PRN  PO
     Route: 048
     Dates: start: 20060821
  2. MOTRIN [Suspect]
     Indication: PAIN
     Dosage: 800MG  PRN  PO
     Route: 048
  3. ASA 81 MG DAILY PO [Suspect]
     Dosage: 81MG DAILY PO
     Route: 048
     Dates: start: 20060604

REACTIONS (1)
  - RENAL FAILURE ACUTE [None]
